FAERS Safety Report 9542753 (Version 1)
Quarter: 2013Q3

REPORT INFORMATION
  Report Type: Spontaneous
  Country: US (occurrence: US)
  Receive Date: 20130923
  Receipt Date: 20130923
  Transmission Date: 20140515
  Serious: No
  Sender: FDA-Public Use
  Company Number: US-PFIZER INC-2013272700

PATIENT
  Age: 58 Year
  Sex: Female
  Weight: 90.7 kg

DRUGS (4)
  1. LYRICA [Suspect]
     Indication: DIABETIC NEUROPATHY
     Dosage: 100 MG, 3X/DAY
     Dates: start: 201307, end: 201309
  2. CELEBREX [Concomitant]
     Indication: ARTHRITIS
     Dosage: 200 MG, 1X/DAY
  3. METFORMIN [Concomitant]
     Indication: DIABETES MELLITUS
     Dosage: 500 MG, 2X/DAY
  4. AMLODIPINE [Concomitant]
     Indication: HYPERTENSION
     Dosage: 5/40MG DAILY

REACTIONS (2)
  - Pain in extremity [Not Recovered/Not Resolved]
  - Arthralgia [Not Recovered/Not Resolved]
